FAERS Safety Report 8479254-0 (Version None)
Quarter: 2012Q2

REPORT INFORMATION
  Report Type: 
  Country: None (occurrence: None)
  Receive Date: 20120629
  Receipt Date: 20120620
  Transmission Date: 20120825
  Serious: Yes (Other)
  Sender: FDA-Public Use
  Company Number: US-GLAXOSMITHKLINE-A0936949A

PATIENT
  Age: 37 Year
  Sex: Female

DRUGS (4)
  1. KLONOPIN [Concomitant]
  2. PROZAC [Concomitant]
     Dates: start: 20110714
  3. LAMOTRIGINE [Suspect]
     Indication: BIPOLAR DISORDER
     Dosage: 200MG TWICE PER DAY
     Route: 048
     Dates: start: 20081117
  4. CELEXA [Concomitant]
     Dates: end: 20110714

REACTIONS (2)
  - MATERNAL EXPOSURE DURING PREGNANCY [None]
  - ABORTION SPONTANEOUS [None]
